FAERS Safety Report 10050479 (Version 1)
Quarter: 2014Q2

REPORT INFORMATION
  Report Type: Spontaneous
  Country: US (occurrence: US)
  Receive Date: 20140401
  Receipt Date: 20140401
  Transmission Date: 20141212
  Serious: No
  Sender: FDA-Public Use
  Company Number: US-ASTRAZENECA-2013SE83970

PATIENT
  Age: 59 Year
  Sex: Female
  Weight: 49 kg

DRUGS (4)
  1. NEXIUM [Suspect]
     Indication: DYSPEPSIA
     Route: 048
  2. ADVIL [Concomitant]
     Indication: HEADACHE
     Dosage: 2 PILLS DAILY
  3. ADVIL [Concomitant]
     Indication: COUGH
     Dosage: 2 PILLS DAILY
  4. LORACINE [Concomitant]
     Indication: NASOPHARYNGITIS
     Dosage: 2 PILLS DAILY

REACTIONS (9)
  - Dyspepsia [Unknown]
  - Nasopharyngitis [Unknown]
  - Cough [Unknown]
  - Aphonia [Unknown]
  - Weight increased [Unknown]
  - Sneezing [Unknown]
  - Rhinorrhoea [Unknown]
  - Headache [Unknown]
  - Intentional product misuse [Unknown]
